FAERS Safety Report 10034097 (Version 1)
Quarter: 2014Q1

REPORT INFORMATION
  Report Type: Spontaneous
  Country: NL (occurrence: None)
  Receive Date: 20140320
  Receipt Date: 20140320
  Transmission Date: 20141002
  Serious: Yes (Hospitalization, Other)
  Sender: FDA-Public Use
  Company Number: AUR-APL-2014-02640

PATIENT
  Age: 28 Year
  Sex: Male

DRUGS (2)
  1. RISPERIDONE [Suspect]
     Indication: SCHIZOPHRENIA, PARANOID TYPE
     Dosage: (3 MG, 1 D), UNKNOWN
  2. TESTOSTERONE (TESTOSTERONE) [Concomitant]

REACTIONS (2)
  - Metabolic disorder [None]
  - Therapeutic response decreased [None]
